FAERS Safety Report 17291111 (Version 3)
Quarter: 2020Q2

REPORT INFORMATION
  Report Type: Spontaneous
  Country: GB (occurrence: GB)
  Receive Date: 20200121
  Receipt Date: 20200414
  Transmission Date: 20200713
  Serious: Yes (Other)
  Sender: FDA-Public Use
  Company Number: GB-BAYER-2019-235845

PATIENT
  Age: 32 Year
  Sex: Female
  Weight: 61 kg

DRUGS (2)
  1. MIRENA [Suspect]
     Active Substance: LEVONORGESTREL
     Indication: CONTRACEPTION
     Dosage: 20 ?G PER DAY, CONTINUOUSLY
     Route: 015
     Dates: start: 20140728, end: 20200213
  2. IBUPROFEN. [Concomitant]
     Active Substance: IBUPROFEN
     Indication: ANALGESIC THERAPY
     Dosage: UNK
     Dates: start: 20140728

REACTIONS (3)
  - Device breakage [Recovered/Resolved]
  - Complication of device removal [None]
  - Embedded device [Recovered/Resolved]

NARRATIVE: CASE EVENT DATE: 20191209
